FAERS Safety Report 13187663 (Version 1)
Quarter: 2017Q1

REPORT INFORMATION
  Report Type: Spontaneous
  Country: US (occurrence: US)
  Receive Date: 20170206
  Receipt Date: 20170206
  Transmission Date: 20170428
  Serious: Yes (Hospitalization)
  Sender: FDA-Public Use
  Company Number: US-UCBSA-2017004121

PATIENT
  Sex: Female

DRUGS (3)
  1. ADVIL [Suspect]
     Active Substance: IBUPROFEN
     Indication: PRODUCT USED FOR UNKNOWN INDICATION
     Dosage: UNK
  2. VIMPAT [Suspect]
     Active Substance: LACOSAMIDE
     Indication: PRODUCT USED FOR UNKNOWN INDICATION
     Dosage: UNK
  3. VICODIN [Suspect]
     Active Substance: ACETAMINOPHEN\HYDROCODONE BITARTRATE
     Indication: PRODUCT USED FOR UNKNOWN INDICATION
     Dosage: UNK

REACTIONS (12)
  - Muscle spasms [Unknown]
  - Visual impairment [Unknown]
  - Unevaluable event [Unknown]
  - Headache [Unknown]
  - Drug ineffective [Unknown]
  - Seizure [Unknown]
  - Pain [Unknown]
  - Heart rate increased [Unknown]
  - Choking [Unknown]
  - Head injury [Unknown]
  - Product difficult to swallow [Unknown]
  - Ligament sprain [Unknown]
